FAERS Safety Report 7471089-0 (Version None)
Quarter: 2011Q2

REPORT INFORMATION
  Report Type: 
  Country: None (occurrence: None)
  Receive Date: 20110506
  Receipt Date: 20110506
  Transmission Date: 20111010
  Serious: No
  Sender: FDA-Public Use
  Company Number: None

PATIENT
  Sex: Female
  Weight: 47.6277 kg

DRUGS (2)
  1. CLONAZEPAM [Suspect]
     Indication: INSOMNIA
     Dosage: 1.5MG - THEN 1.0 MG THEN 0.5MG 1 NIGHTLY ORAL
     Route: 048
  2. CLONAZEPAM [Suspect]
     Indication: RESTLESS LEGS SYNDROME
     Dosage: 1.5MG - THEN 1.0 MG THEN 0.5MG 1 NIGHTLY ORAL
     Route: 048

REACTIONS (1)
  - MUSCLE SPASMS [None]
